FAERS Safety Report 6657866-4 (Version None)
Quarter: 2010Q1

REPORT INFORMATION
  Report Type: 
  Country: None (occurrence: None)
  Receive Date: 20100330
  Receipt Date: 20100323
  Transmission Date: 20100710
  Serious: Yes (Death)
  Sender: FDA-Public Use
  Company Number: HU-ROCHE-689617

PATIENT
  Age: 52 Year
  Sex: Female

DRUGS (4)
  1. BONIVA [Suspect]
     Indication: OSTEOPOROSIS
     Dosage: ROUTE REPORTED AS TABLET.
     Route: 065
     Dates: start: 20070101
  2. BONIVA [Suspect]
     Route: 042
     Dates: end: 20090921
  3. FOSAMAX [Concomitant]
     Dates: start: 20060101
  4. STEROID NOS [Concomitant]

REACTIONS (1)
  - OSTEONECROSIS [None]
